FAERS Safety Report 19658536 (Version 2)
Quarter: 2021Q3

REPORT INFORMATION
  Report Type: Spontaneous
  Country: GB (occurrence: GB)
  Receive Date: 20210805
  Receipt Date: 20210817
  Transmission Date: 20211014
  Serious: Yes (Disabling, Other)
  Sender: FDA-Public Use
  Company Number: GB-CIPLA (EU) LIMITED-2021GB05318

PATIENT

DRUGS (4)
  1. CETIRIZINE [Suspect]
     Active Substance: CETIRIZINE HYDROCHLORIDE
     Indication: PSORIASIS
     Dosage: 10 MILLIGRAM, QD (QHS), (CAPSULE)
     Route: 048
     Dates: start: 20170928, end: 20171129
  2. DIPROSALIC [Concomitant]
     Active Substance: BETAMETHASONE DIPROPIONATE
     Indication: PRODUCT USED FOR UNKNOWN INDICATION
     Dosage: 2 DOSAGE FORM, APPLY
     Route: 065
     Dates: start: 20170928
  3. DOVOBET [Concomitant]
     Active Substance: BETAMETHASONE\CALCIPOTRIENE
     Indication: PRODUCT USED FOR UNKNOWN INDICATION
     Dosage: 1 DOSAGE FORM, QD, QHS (APPLY AT NIGHT)
     Route: 065
     Dates: start: 20170928
  4. SERTRALINE [Concomitant]
     Active Substance: SERTRALINE HYDROCHLORIDE
     Indication: PRODUCT USED FOR UNKNOWN INDICATION
     Dosage: 50 MILLIGRAM, UNK (AS ADVISED BY CONSULTANT)
     Route: 065
     Dates: start: 20171120

REACTIONS (2)
  - Off label use [Unknown]
  - Acute psychosis [Recovered/Resolved]

NARRATIVE: CASE EVENT DATE: 20171129
